FAERS Safety Report 7541379-1 (Version None)
Quarter: 2011Q2

REPORT INFORMATION
  Report Type: 
  Country: None (occurrence: None)
  Receive Date: 20110613
  Receipt Date: 20110603
  Transmission Date: 20111010
  Serious: Yes (Hospitalization)
  Sender: FDA-Public Use
  Company Number: US-BIOGENIDEC-2011BI011847

PATIENT
  Age: 55 Year
  Sex: Female

DRUGS (4)
  1. EFFEXOR XR [Concomitant]
     Indication: DEPRESSION
  2. XANAX [Concomitant]
     Indication: DEPRESSION
  3. AVONEX [Suspect]
     Indication: MULTIPLE SCLEROSIS
     Route: 030
     Dates: start: 20000301
  4. AVONEX [Suspect]
     Route: 030

REACTIONS (12)
  - PAIN IN EXTREMITY [None]
  - HYPERTENSION [None]
  - VITAMIN D DEFICIENCY [None]
  - URINARY INCONTINENCE [None]
  - CARDIAC ARREST [None]
  - HERPES SIMPLEX [None]
  - GLUCOSE TOLERANCE IMPAIRED [None]
  - GASTRIC DISORDER [None]
  - BLOOD CHOLESTEROL ABNORMAL [None]
  - CONSTIPATION [None]
  - RENAL FAILURE ACUTE [None]
  - ATRIAL TACHYCARDIA [None]
